FAERS Safety Report 12666066 (Version 1)
Quarter: 2016Q3

REPORT INFORMATION
  Report Type: Spontaneous
  Country: US (occurrence: US)
  Receive Date: 20160818
  Receipt Date: 20160818
  Transmission Date: 20161109
  Serious: No
  Sender: FDA-Public Use
  Company Number: US-JAZZ-2016-US-005403

PATIENT
  Age: 62 Year
  Sex: Female

DRUGS (24)
  1. XYREM [Suspect]
     Active Substance: SODIUM OXYBATE
     Indication: HYPERSOMNIA
     Dosage: 3 G, BID
     Route: 048
     Dates: start: 201001, end: 201002
  2. FOSAMAX [Concomitant]
     Active Substance: ALENDRONATE SODIUM
  3. COMPAZINE [Concomitant]
     Active Substance: PROCHLORPERAZINE MALEATE
  4. IMITREX [Concomitant]
     Active Substance: SUMATRIPTAN SUCCINATE
  5. LYRICA [Concomitant]
     Active Substance: PREGABALIN
  6. METHADONE HCL [Concomitant]
     Active Substance: METHADONE HYDROCHLORIDE
  7. CALCIUM [Concomitant]
     Active Substance: CALCIUM
  8. ZOLPIDEM TARTRATE. [Concomitant]
     Active Substance: ZOLPIDEM TARTRATE
  9. XANAX [Concomitant]
     Active Substance: ALPRAZOLAM
  10. FISH OIL [Concomitant]
     Active Substance: FISH OIL
  11. FOLIC ACID. [Concomitant]
     Active Substance: FOLIC ACID
  12. XARELTO [Concomitant]
     Active Substance: RIVAROXABAN
  13. BUTALBITAL [Concomitant]
     Active Substance: BUTALBITAL
  14. PERCODAN [Concomitant]
     Active Substance: ASPIRIN\OXYCODONE HYDROCHLORIDE
  15. SOMA [Concomitant]
     Active Substance: CARISOPRODOL
  16. HUMIRA [Concomitant]
     Active Substance: ADALIMUMAB
  17. LISINOPRIL. [Concomitant]
     Active Substance: LISINOPRIL
  18. TOPAMAX [Concomitant]
     Active Substance: TOPIRAMATE
  19. XYREM [Suspect]
     Active Substance: SODIUM OXYBATE
     Dosage: DOSE ADJUSTMENTS
     Route: 048
  20. XYREM [Suspect]
     Active Substance: SODIUM OXYBATE
     Dosage: 4.5 G, BID
     Route: 048
     Dates: start: 201509
  21. VITAMIN C [Concomitant]
     Active Substance: ASCORBIC ACID
  22. ZINC [Concomitant]
     Active Substance: ZINC\ZINC CHLORIDE
  23. OXYCODONE HYDROCHLORIDE. [Concomitant]
     Active Substance: OXYCODONE HYDROCHLORIDE
  24. RESTORIL [Concomitant]
     Active Substance: TEMAZEPAM

REACTIONS (1)
  - Muscle strain [Unknown]

NARRATIVE: CASE EVENT DATE: 20160318
